FAERS Safety Report 24432469 (Version 2)
Quarter: 2024Q4

REPORT INFORMATION
  Report Type: Spontaneous
  Country: US (occurrence: US)
  Receive Date: 20241014
  Receipt Date: 20241017
  Transmission Date: 20250114
  Serious: Yes (Disabling, Other)
  Sender: MACLEODS
  Company Number: US-MACLEODS PHARMA-MAC2024049750

PATIENT

DRUGS (1)
  1. TRIAMCINOLONE [Suspect]
     Active Substance: TRIAMCINOLONE
     Indication: Immunoglobulin G4 related disease
     Dosage: 2ML OF 40MG/ML WITH A 25-GAUGE NEEDLE ON EACH SIDED
     Route: 026

REACTIONS (2)
  - Retinal artery occlusion [Unknown]
  - Blindness [Recovering/Resolving]
